FAERS Safety Report 20830106 (Version 1)
Quarter: 2022Q2

REPORT INFORMATION
  Report Type: Spontaneous
  Country: CH (occurrence: CH)
  Receive Date: 20220514
  Receipt Date: 20220514
  Transmission Date: 20220720
  Serious: Yes (Other)
  Sender: FDA-Public Use
  Company Number: CH-TEVA-2022-CH-2037084

PATIENT
  Age: 30 Year
  Sex: Male

DRUGS (20)
  1. FLUOROURACIL [Suspect]
     Active Substance: FLUOROURACIL
     Indication: Colorectal cancer metastatic
     Dosage: PART OF FOLFOXIRI REGIMEN
     Route: 065
  2. FLUOROURACIL [Suspect]
     Active Substance: FLUOROURACIL
     Indication: BRAF V600E mutation positive
     Dosage: PART OF FOLFOX REGIMEN
     Route: 065
  3. IRINOTECAN [Suspect]
     Active Substance: IRINOTECAN
     Indication: Colorectal cancer metastatic
     Dosage: PART OF FOLFOXIRI REGIMEN
     Route: 065
  4. IRINOTECAN [Suspect]
     Active Substance: IRINOTECAN
     Indication: BRAF V600E mutation positive
  5. OXALIPLATIN [Suspect]
     Active Substance: OXALIPLATIN
     Indication: Colorectal cancer metastatic
     Dosage: PART OF FOLFOXIRI REGIMEN
     Route: 065
  6. OXALIPLATIN [Suspect]
     Active Substance: OXALIPLATIN
     Indication: BRAF V600E mutation positive
     Dosage: PART OF FOLFOX REGIMEN
     Route: 065
  7. BEVACIZUMAB [Suspect]
     Active Substance: BEVACIZUMAB
     Indication: Colorectal cancer metastatic
     Route: 065
  8. BEVACIZUMAB [Suspect]
     Active Substance: BEVACIZUMAB
     Indication: BRAF V600E mutation positive
  9. LEUCOVORIN [Suspect]
     Active Substance: LEUCOVORIN
     Indication: Colorectal cancer metastatic
     Dosage: PART OF FOLFOXIRI REGIMEN
     Route: 065
  10. LEUCOVORIN [Suspect]
     Active Substance: LEUCOVORIN
     Indication: BRAF V600E mutation positive
     Dosage: PART OF FOLFOX REGIMEN
     Route: 065
  11. CETUXIMAB [Suspect]
     Active Substance: CETUXIMAB
     Indication: Colorectal cancer metastatic
     Route: 065
  12. CETUXIMAB [Suspect]
     Active Substance: CETUXIMAB
     Indication: BRAF V600E mutation positive
  13. ENCORAFENIB [Suspect]
     Active Substance: ENCORAFENIB
     Indication: Colorectal cancer metastatic
     Dosage: DOSE AT INITIAL INITIATION UNKNOWN
     Route: 065
  14. ENCORAFENIB [Suspect]
     Active Substance: ENCORAFENIB
     Indication: BRAF V600E mutation positive
     Dosage: INCREMENTAL DOSING FROM 75 TO 225 MG DAILY
     Route: 065
  15. BINIMETINIB [Suspect]
     Active Substance: BINIMETINIB
     Indication: Colorectal cancer metastatic
     Route: 065
  16. BINIMETINIB [Suspect]
     Active Substance: BINIMETINIB
     Indication: BRAF V600E mutation positive
  17. CAPMATINIB [Suspect]
     Active Substance: CAPMATINIB
     Indication: Colorectal cancer metastatic
     Dosage: 800 MILLIGRAM DAILY;
     Route: 065
  18. CAPMATINIB [Suspect]
     Active Substance: CAPMATINIB
     Indication: BRAF V600E mutation positive
  19. CABOZANTINIB [Suspect]
     Active Substance: CABOZANTINIB
     Indication: Colorectal cancer metastatic
     Route: 065
  20. CABOZANTINIB [Suspect]
     Active Substance: CABOZANTINIB
     Indication: BRAF V600E mutation positive

REACTIONS (6)
  - Skin toxicity [Unknown]
  - Diarrhoea [Unknown]
  - Pyrexia [Unknown]
  - Anaemia [Unknown]
  - Drug resistance [Unknown]
  - Drug ineffective [Unknown]
